FAERS Safety Report 8360478-8 (Version None)
Quarter: 2012Q2

REPORT INFORMATION
  Report Type: 
  Country: None (occurrence: None)
  Receive Date: 20120515
  Receipt Date: 20120509
  Transmission Date: 20120825
  Serious: Yes (Death, Other)
  Sender: FDA-Public Use
  Company Number: US-BAYER-201015437NA

PATIENT
  Age: 82 Year
  Sex: Male
  Weight: 95.238 kg

DRUGS (20)
  1. COENZYME Q10 [Concomitant]
     Dosage: UNK, BID
  2. HAWTHORN [Concomitant]
     Dosage: UNK UNK, QD
  3. TRASYLOL [Suspect]
     Indication: CORONARY ARTERY BYPASS
     Dosage: 200 ML (PER BILLING RECORD)
     Route: 042
     Dates: start: 20060319
  4. PRIMATENE MIST [Concomitant]
  5. NITROGLYCERIN [Concomitant]
     Indication: CHEST PAIN
     Dosage: UNK, PRN
     Dates: start: 20050818
  6. SAM-E [Concomitant]
     Dosage: UNK UNK, QD
  7. ASCORBIC ACID [Concomitant]
     Dosage: UNK UNK, QD
  8. ASPIRIN [Concomitant]
     Dosage: UNK
     Dates: start: 19860101, end: 20060101
  9. INTEGRILIN [Concomitant]
     Indication: ACUTE CORONARY SYNDROME
     Route: 042
  10. MULTI-VITAMIN [Concomitant]
     Dosage: UNK UNK, QD
  11. VITAMIN A [Concomitant]
     Dosage: UNK UNK, QD
  12. ACIPHEX [Concomitant]
     Dosage: UNK UNK, QD
  13. CARBIDOPA [Concomitant]
     Dosage: 10 MG, QD
  14. COD LIVER OIL [Concomitant]
     Dosage: 30/MI DAILY
  15. LISINOPRIL [Concomitant]
     Indication: HYPERTENSION
     Dosage: UNK
     Dates: start: 19900101, end: 20060101
  16. GLUCOPHAGE [Concomitant]
     Dosage: 500 MG, QD
  17. MAGNESIUM [Concomitant]
     Dosage: UNK UNK, QD
  18. MAXZIDE [Concomitant]
     Dosage: 75/50 MG DAILY
  19. L-CARNITINE [Concomitant]
     Dosage: UNK UNK, QD
  20. VITAMIN E [Concomitant]
     Dosage: UNK UNK, QD

REACTIONS (5)
  - RENAL FAILURE [None]
  - DEATH [None]
  - RENAL FAILURE ACUTE [None]
  - PAIN [None]
  - INJURY [None]
